FAERS Safety Report 9495575 (Version 1)
Quarter: 2013Q3

REPORT INFORMATION
  Report Type: Report from Study
  Country: US (occurrence: US)
  Receive Date: 20130903
  Receipt Date: 20130903
  Transmission Date: 20140515
  Serious: Yes (Disabling)
  Sender: FDA-Public Use
  Company Number: US-US-EMD SERONO, INC.-7234190

PATIENT
  Age: 61 Year
  Sex: Female

DRUGS (1)
  1. REBIF [Suspect]
     Indication: MULTIPLE SCLEROSIS
     Route: 058
     Dates: start: 20130322

REACTIONS (7)
  - Deafness unilateral [Unknown]
  - Nausea [Unknown]
  - Multiple sclerosis [Not Recovered/Not Resolved]
  - Feeling hot [Unknown]
  - Pyrexia [Unknown]
  - Chills [Unknown]
  - Injection site pain [Not Recovered/Not Resolved]
